FAERS Safety Report 8486425-6 (Version None)
Quarter: 2012Q3

REPORT INFORMATION
  Report Type: 
  Country: None (occurrence: None)
  Receive Date: 20120703
  Receipt Date: 20120619
  Transmission Date: 20120928
  Serious: Yes (Other)
  Sender: FDA-Public Use
  Company Number: CHPA2012US013336

PATIENT
  Sex: Male

DRUGS (1)
  1. GAS-X EXTSTR CHEW TABS PEPPERMINT CREME [Suspect]
     Indication: FLATULENCE
     Dosage: 2 DF, ONCE/SINGLE
     Route: 048
     Dates: start: 20120619, end: 20120619

REACTIONS (1)
  - APPENDICITIS [None]
